FAERS Safety Report 6194220-6 (Version None)
Quarter: 2009Q2

REPORT INFORMATION
  Report Type: 
  Country: None (occurrence: None)
  Receive Date: 20090515
  Receipt Date: 20090515
  Transmission Date: 20091009
  Serious: Yes (Life-Threatening, Disabling)
  Sender: FDA-Public Use
  Company Number: None

PATIENT
  Age: 56 Year
  Sex: Male
  Weight: 79.3795 kg

DRUGS (6)
  1. ZYPREXA [Suspect]
     Indication: MENTAL RETARDATION
     Dosage: 1,000-2,000 (2XDLY) TO CAUSE CONVULSION UNTIL DEATH OCCUR
  2. DEPAKOTE [Suspect]
     Indication: MENTAL RETARDATION
     Dosage: 1,000-2,000 (2XDLY) TO CAUSE CONVULSION UNTIL DEATH OCCUR
  3. HALOPERIDOL [Suspect]
     Indication: MENTAL RETARDATION
     Dosage: 1,000-2,000 (2XDLY) TO CAUSE CONVULSION UNTIL DEATH OCCUR
  4. LAMICTAL [Suspect]
     Dosage: 1,700 TO 2,400 TO CAUSE BRAIN, LIVER, KIDNEY DAMAGE UNTIL SEVERED DAMAGE
  5. LITHIUM [Suspect]
     Dosage: 1,700 TO 2,400 TO CAUSE BRAIN, LIVER, KIDNEY DAMAGE UNTIL SEVERED DAMAGE
  6. OLANZAPINE [Suspect]
     Dosage: 1,700 TO 2,400 TO CAUSE BRAIN, LIVER, KIDNEY DAMAGE UNTIL SEVERED DAMAGE

REACTIONS (11)
  - BLINDNESS [None]
  - BRAIN INJURY [None]
  - COMA [None]
  - CONVULSION [None]
  - IATROGENIC INJURY [None]
  - LIVER INJURY [None]
  - RENAL INJURY [None]
  - SUICIDAL IDEATION [None]
  - SYNCOPE [None]
  - VICTIM OF CRIME [None]
  - VOMITING [None]
